FAERS Safety Report 25372557 (Version 3)
Quarter: 2025Q3

REPORT INFORMATION
  Report Type: Spontaneous
  Country: US (occurrence: US)
  Receive Date: 20250529
  Receipt Date: 20250929
  Transmission Date: 20251020
  Serious: Yes (Other)
  Sender: BRISTOL-MYERS SQUIBB COMPANY
  Company Number: US-BRISTOL-MYERS SQUIBB COMPANY-2025-076453

PATIENT
  Age: 75 Year
  Sex: Female

DRUGS (2)
  1. LENALIDOMIDE [Suspect]
     Active Substance: LENALIDOMIDE
     Indication: Plasma cell myeloma recurrent
     Dosage: FREQUENCY-TAKE 1 CAPSULE (15MG TOTAL) BY MOUTH EVERY DAY FOR 21 DAYS THEN 7 DAYS OFF.
  2. LENALIDOMIDE [Suspect]
     Active Substance: LENALIDOMIDE
     Dosage: FREQUENCY: TAKE 1 CAPSULE (10 MG TOTAL) BY MOUTH DAILY FOR 21 DAYS, THEN 7 DAYS OFF

REACTIONS (4)
  - Oedema [Unknown]
  - Thrombosis [Unknown]
  - Pneumonia [Unknown]
  - Lymphoedema [Not Recovered/Not Resolved]
